FAERS Safety Report 7052608-5 (Version None)
Quarter: 2010Q4

REPORT INFORMATION
  Report Type: 
  Country: None (occurrence: None)
  Receive Date: 20101019
  Receipt Date: 20101007
  Transmission Date: 20110411
  Serious: Yes (Life-Threatening)
  Sender: FDA-Public Use
  Company Number: FR-PFIZER INC-2010127488

PATIENT
  Age: 46 Year
  Sex: Male
  Weight: 71 kg

DRUGS (17)
  1. XALATAN [Suspect]
     Indication: OCULAR HYPERTENSION
     Dosage: 1 DF, 1X/DAY
     Route: 031
     Dates: start: 20100507
  2. MABCAMPATH [Suspect]
     Indication: PROLYMPHOCYTIC LEUKAEMIA
     Dosage: 10 MG, 3X/WEEK
     Route: 058
     Dates: start: 20100607, end: 20100611
  3. MABCAMPATH [Suspect]
     Dosage: 30 MG, 3X/WEEK
     Route: 058
     Dates: start: 20100614, end: 20100630
  4. MABCAMPATH [Suspect]
     Dosage: 30 MG, 3X/WEEK
     Route: 058
     Dates: start: 20100702, end: 20100716
  5. MABCAMPATH [Suspect]
     Dosage: 30 MG, 3X/WEEK
     Route: 058
     Dates: start: 20100802, end: 20100827
  6. AERIUS [Concomitant]
     Indication: PREMEDICATION
     Dosage: UNK
  7. PARACETAMOL [Concomitant]
     Indication: PREMEDICATION
     Dosage: UNK
  8. ZOFRAN [Concomitant]
     Dosage: UNK
  9. TENORMIN [Concomitant]
     Dosage: 25 MG, 2X/DAY
  10. KARDEGIC [Concomitant]
     Dosage: 75 MG, 1X/DAY
  11. PLAVIX [Concomitant]
     Dosage: 1 DF, 1X/DAY
  12. PERINDOPRIL ERBUMINE [Concomitant]
     Dosage: 2.5 MG, 1X/DAY
  13. EZETROL [Concomitant]
     Dosage: 10 MG, 1X/DAY
  14. SKENAN [Concomitant]
     Dosage: 30 MG, 2X/DAY
  15. MORPHINE [Concomitant]
     Indication: HEADACHE
     Dosage: 10 MG, AS NEEDED
  16. BACTRIM [Concomitant]
     Dosage: UNK
  17. VALACYCLOVIR HYDROCHLORIDE [Concomitant]
     Dosage: UNK

REACTIONS (2)
  - ANGINA UNSTABLE [None]
  - CORONARY ARTERY DISEASE [None]
